FAERS Safety Report 6922556-7 (Version None)
Quarter: 2010Q3

REPORT INFORMATION
  Report Type: 
  Country: None (occurrence: None)
  Receive Date: 20100813
  Receipt Date: 20100730
  Transmission Date: 20110219
  Serious: Yes (Hospitalization, Other)
  Sender: FDA-Public Use
  Company Number: US-ELI_LILLY_AND_COMPANY-US201008001131

PATIENT
  Sex: Female

DRUGS (11)
  1. FORTEO [Suspect]
     Indication: OSTEOPOROSIS
     Dosage: 20 UG, DAILY (1/D)
  2. VITAMIN D3 [Concomitant]
     Dosage: 2000 IU, UNK
  3. CRESTOR [Concomitant]
     Dosage: 20 MG, EACH EVENING
  4. PRESERVISION LUTEIN EYE VITA.+MIN.SUP.SOFTG. [Concomitant]
     Dosage: UNK, 2/D
  5. AZOR [Concomitant]
     Dosage: UNK, EACH MORNING
  6. AVANDAMET [Concomitant]
     Dosage: 500 MG, 2/D
  7. NEXIUM [Concomitant]
     Dosage: 40 MG, DAILY (1/D)
  8. LUMIGAN [Concomitant]
     Dosage: 2.5 MG, EACH EVENING
  9. ASPIRIN [Concomitant]
     Dosage: 325 MG, DAILY (1/D)
  10. RESTASIS [Concomitant]
     Dosage: 0.05 MG, 2/D
  11. VENTOLIN [Concomitant]
     Dosage: UNK, 2/D

REACTIONS (2)
  - ABDOMINAL PAIN [None]
  - INTESTINAL OBSTRUCTION [None]
